FAERS Safety Report 24194991 (Version 2)
Quarter: 2024Q4

REPORT INFORMATION
  Report Type: Spontaneous
  Country: US (occurrence: US)
  Receive Date: 20240809
  Receipt Date: 20241209
  Transmission Date: 20250115
  Serious: No
  Sender: PFIZER
  Company Number: US-PFIZER INC-PV202400102211

PATIENT
  Age: 65 Year
  Sex: Female

DRUGS (2)
  1. TUKYSA [Suspect]
     Active Substance: TUCATINIB
     Indication: Breast cancer female
     Dosage: 150MG, TWO TABLETS TWICE A DAY
  2. TUKYSA [Suspect]
     Active Substance: TUCATINIB
     Dosage: 150 MG ORALLY, TAKE 2 TABLETS BY MOUTH 2 TIMES DAILY FOR CANCER. TAKE WITH OR WITHOUT FOOD.
     Route: 048
     Dates: end: 20240718

REACTIONS (1)
  - Illness [Unknown]
